FAERS Safety Report 7647710-0 (Version None)
Quarter: 2011Q3

REPORT INFORMATION
  Report Type: 
  Country: None (occurrence: None)
  Receive Date: 20110801
  Receipt Date: 20110801
  Transmission Date: 20111222
  Serious: Yes (Other)
  Sender: FDA-Public Use
  Company Number: None

PATIENT
  Age: 76 Year
  Sex: Male
  Weight: 74.842 kg

DRUGS (1)
  1. FIRMAGON [Suspect]
     Indication: PROSTATE CANCER
     Dosage: 120MG
     Route: 058
     Dates: start: 20110728, end: 20110730

REACTIONS (4)
  - MOVEMENT DISORDER [None]
  - ABDOMINAL DISCOMFORT [None]
  - PELVIC PAIN [None]
  - GAIT DISTURBANCE [None]
